FAERS Safety Report 12118488 (Version 1)
Quarter: 2016Q1

REPORT INFORMATION
  Report Type: Spontaneous
  Country: US (occurrence: None)
  Receive Date: 20160224
  Receipt Date: 20160224
  Transmission Date: 20160526
  Serious: No
  Sender: FDA-Public Use
  Company Number: None

PATIENT
  Age: 76 Year
  Sex: Female
  Weight: 68.04 kg

DRUGS (4)
  1. CENTRUM SILVER [Concomitant]
     Active Substance: MINERALS\VITAMINS
  2. CHOLESTYRAMINE. [Concomitant]
     Active Substance: CHOLESTYRAMINE
  3. LISNIOPRIL LUPIN [Suspect]
     Active Substance: LISINOPRIL
     Indication: HYPERTENSION
     Dosage: 10 MG 1 PILL DAILY AM MOUTH
     Route: 048
     Dates: start: 20160129, end: 20160207
  4. TYLENOL [Concomitant]
     Active Substance: ACETAMINOPHEN

REACTIONS (3)
  - Weight decreased [None]
  - Cholecystectomy [None]
  - Diarrhoea [None]

NARRATIVE: CASE EVENT DATE: 20160206
